FAERS Safety Report 21240303 (Version 1)
Quarter: 2022Q3

REPORT INFORMATION
  Report Type: Spontaneous
  Country: US (occurrence: None)
  Receive Date: 20220820
  Receipt Date: 20220820
  Transmission Date: 20221027
  Serious: No
  Sender: FDA-Public Use
  Company Number: None

PATIENT
  Age: 44 Year
  Sex: Female

DRUGS (1)
  1. SPRYCEL [Suspect]
     Active Substance: DASATINIB
     Dosage: FREQUENCY : DAILY;?
     Route: 048
     Dates: start: 201501

REACTIONS (5)
  - Myalgia [None]
  - Arthralgia [None]
  - Bone pain [None]
  - Headache [None]
  - Inappropriate schedule of product administration [None]

NARRATIVE: CASE EVENT DATE: 20150101
